FAERS Safety Report 7223950-X (Version None)
Quarter: 2011Q1

REPORT INFORMATION
  Report Type: 
  Country: None (occurrence: None)
  Receive Date: 20110113
  Receipt Date: 20110104
  Transmission Date: 20110831
  Serious: No
  Sender: FDA-Public Use
  Company Number: US-BIOGENIDEC-2011BI000483

PATIENT
  Sex: Male

DRUGS (2)
  1. TYSABRI [Suspect]
     Indication: MULTIPLE SCLEROSIS
     Route: 042
     Dates: start: 20100709
  2. AVONEX [Concomitant]
     Indication: MULTIPLE SCLEROSIS
     Route: 030

REACTIONS (6)
  - IMPAIRED HEALING [None]
  - FATIGUE [None]
  - WEIGHT DECREASED [None]
  - LACERATION [None]
  - EXERCISE TOLERANCE DECREASED [None]
  - MULTIPLE SCLEROSIS RELAPSE [None]
